FAERS Safety Report 21843979 (Version 1)
Quarter: 2023Q1

REPORT INFORMATION
  Report Type: Spontaneous
  Country: HR (occurrence: HR)
  Receive Date: 20230110
  Receipt Date: 20230110
  Transmission Date: 20230418
  Serious: Yes (Other)
  Sender: FDA-Public Use
  Company Number: None

PATIENT
  Age: 3 Year
  Sex: Female
  Weight: 14 kg

DRUGS (7)
  1. TRANDOLAPRIL [Suspect]
     Active Substance: TRANDOLAPRIL
     Indication: Product used for unknown indication
     Dosage: UNK
     Route: 048
     Dates: start: 202210, end: 202210
  2. ZOFENOPRIL CALCIUM [Suspect]
     Active Substance: ZOFENOPRIL CALCIUM
     Indication: Product used for unknown indication
     Dosage: UNK
     Route: 048
     Dates: start: 202210, end: 202210
  3. BISOPROLOL FUMARATE [Suspect]
     Active Substance: BISOPROLOL FUMARATE
     Indication: Product used for unknown indication
     Dosage: UNK
     Route: 048
     Dates: start: 202210, end: 202210
  4. DIAZEPAM [Suspect]
     Active Substance: DIAZEPAM
     Indication: Product used for unknown indication
     Dosage: UNK
     Route: 048
     Dates: start: 202210, end: 202210
  5. AMIODARONE [Suspect]
     Active Substance: AMIODARONE
     Indication: Product used for unknown indication
     Dosage: UNK
     Route: 048
     Dates: start: 202210, end: 202210
  6. DIURON [Suspect]
     Active Substance: DIURON
     Indication: Product used for unknown indication
     Dosage: UNK
     Route: 048
     Dates: start: 202210, end: 202210
  7. VENLAFAXINE HYDROCHLORIDE [Suspect]
     Active Substance: VENLAFAXINE HYDROCHLORIDE
     Indication: Product used for unknown indication
     Dosage: UNK
     Route: 048
     Dates: start: 202210, end: 202210

REACTIONS (13)
  - Loss of consciousness [Unknown]
  - Vomiting [Unknown]
  - Hypotension [Unknown]
  - Bradykinesia [Unknown]
  - Asthenia [Unknown]
  - Diarrhoea [Unknown]
  - Somnolence [Unknown]
  - Blood glucose increased [Unknown]
  - Gait disturbance [Unknown]
  - Nausea [Unknown]
  - Accidental exposure to product by child [Unknown]
  - Metabolic acidosis [Unknown]
  - Confusional state [Unknown]

NARRATIVE: CASE EVENT DATE: 20221001
